FAERS Safety Report 14003818 (Version 1)
Quarter: 2017Q3

REPORT INFORMATION
  Report Type: Spontaneous
  Country: US (occurrence: US)
  Receive Date: 20170922
  Receipt Date: 20170922
  Transmission Date: 20171128
  Serious: No
  Sender: FDA-Public Use
  Company Number: US-JNJFOC-20170715857

PATIENT
  Age: 84 Year
  Sex: Female
  Weight: 54.43 kg

DRUGS (6)
  1. FENTANYL TRANSDERMAL SYSTEM [Suspect]
     Active Substance: FENTANYL
     Indication: ARTHRALGIA
     Route: 062
  2. FENTANYL TRANSDERMAL SYSTEM [Suspect]
     Active Substance: FENTANYL
     Indication: ARTHRALGIA
     Dosage: TWO 12 MCG/HR PATCHES EVERY 3 DAYS
     Route: 062
     Dates: start: 201707
  3. FENTANYL TRANSDERMAL SYSTEM [Suspect]
     Active Substance: FENTANYL
     Indication: ARTHRALGIA
     Dosage: 50 MCG/HR AND 12 MCG/HR EVERY 3 DAYS
     Route: 062
     Dates: start: 2014, end: 201707
  4. FENTANYL TRANSDERMAL SYSTEM [Suspect]
     Active Substance: FENTANYL
     Indication: ARTHRITIS
     Dosage: 50 MCG/HR AND 12 MCG/HR EVERY 3 DAYS
     Route: 062
     Dates: start: 2014, end: 201707
  5. FENTANYL TRANSDERMAL SYSTEM [Suspect]
     Active Substance: FENTANYL
     Indication: ARTHRITIS
     Dosage: TWO 12 MCG/HR PATCHES EVERY 3 DAYS
     Route: 062
     Dates: start: 201707
  6. FENTANYL TRANSDERMAL SYSTEM [Suspect]
     Active Substance: FENTANYL
     Indication: ARTHRITIS
     Route: 062

REACTIONS (3)
  - Somnolence [Recovered/Resolved]
  - Hypersomnia [Recovered/Resolved]
  - Drug ineffective [Unknown]

NARRATIVE: CASE EVENT DATE: 201707
